FAERS Safety Report 9059237 (Version 7)
Quarter: 2014Q1

REPORT INFORMATION
  Report Type: Report from Study
  Country: CA (occurrence: CA)
  Receive Date: 20130211
  Receipt Date: 20140319
  Transmission Date: 20141002
  Serious: Yes (Other)
  Sender: FDA-Public Use
  Company Number: CA-ROCHE-1137492

PATIENT
  Age: 61 Year
  Sex: Female
  Weight: 61 kg

DRUGS (4)
  1. ACTEMRA [Suspect]
     Indication: RHEUMATOID ARTHRITIS
     Route: 042
     Dates: start: 20110516
  2. ACTEMRA [Suspect]
     Route: 042
     Dates: start: 20120131
  3. ACTEMRA [Suspect]
     Route: 042
     Dates: start: 20120814
  4. ACTEMRA [Suspect]
     Route: 042
     Dates: start: 20130730

REACTIONS (5)
  - Mammogram abnormal [Unknown]
  - Arthralgia [Recovered/Resolved]
  - Tinea pedis [Not Recovered/Not Resolved]
  - Urinary tract infection [Unknown]
  - Nasal congestion [Recovering/Resolving]
